FAERS Safety Report 5722605-8 (Version None)
Quarter: 2008Q2

REPORT INFORMATION
  Report Type: 
  Country: None (occurrence: None)
  Receive Date: 20080429
  Receipt Date: 20070620
  Transmission Date: 20081010
  Serious: No
  Sender: FDA-Public Use
  Company Number: US-ASTRAZENECA-2007UW14733

PATIENT
  Age: 76 Year
  Sex: Male
  Weight: 81.6 kg

DRUGS (11)
  1. NEXIUM [Suspect]
     Indication: GASTROOESOPHAGEAL REFLUX DISEASE
     Route: 048
     Dates: start: 20070619
  2. NEXIUM [Suspect]
     Route: 048
  3. SPIRIVA [Concomitant]
  4. PREDNISONE [Concomitant]
  5. ALBUTEROL [Concomitant]
     Route: 055
  6. ADVAIR HFA [Concomitant]
  7. DARVOCET [Concomitant]
  8. TYLENOL EXTRA STRENGTH [Concomitant]
     Indication: PAIN
  9. ASCORBIC ACID [Concomitant]
  10. VITAMIN CAP [Concomitant]
  11. NASONEX [Concomitant]
     Route: 045

REACTIONS (5)
  - ABDOMINAL PAIN [None]
  - DRUG INEFFECTIVE [None]
  - DYSPEPSIA [None]
  - NAUSEA [None]
  - STOMACH DISCOMFORT [None]
